FAERS Safety Report 5625010-8 (Version None)
Quarter: 2008Q1

REPORT INFORMATION
  Report Type: 
  Country: None (occurrence: None)
  Receive Date: 20080213
  Receipt Date: 20080201
  Transmission Date: 20080703
  Serious: Yes (Hospitalization)
  Sender: FDA-Public Use
  Company Number: FR-PFIZER INC-2007090727

PATIENT
  Sex: Female

DRUGS (7)
  1. CHANTIX [Suspect]
     Indication: SMOKING CESSATION THERAPY
  2. LITHIUM CARBONATE [Concomitant]
  3. KARDEGIC [Concomitant]
  4. LEVOTHYROX [Concomitant]
  5. LEXOMIL [Concomitant]
  6. ZOPICLONE [Concomitant]
  7. ATACAND [Concomitant]

REACTIONS (4)
  - DELIRIUM [None]
  - DEPRESSION [None]
  - INSOMNIA [None]
  - MANIA [None]
